FAERS Safety Report 19064931 (Version 1)
Quarter: 2021Q1

REPORT INFORMATION
  Report Type: Not Available
  Country: None (occurrence: None)
  Receive Date: 20210326
  Receipt Date: 20210326
  Transmission Date: 20210420
  Serious: No
  Sender: FDA-Public Use
  Company Number: US-AKORN-163111

PATIENT
  Age: 71 Year
  Sex: Female

DRUGS (1)
  1. COSOPT PF [Suspect]
     Active Substance: DORZOLAMIDE HYDROCHLORIDE\TIMOLOL MALEATE

REACTIONS (5)
  - Eye swelling [None]
  - Ocular hyperaemia [None]
  - Eye pruritus [Recovered/Resolved]
  - Paraesthesia [Recovered/Resolved]
  - Feeling jittery [Recovered/Resolved]
